FAERS Safety Report 5521920-0 (Version None)
Quarter: 2007Q4

REPORT INFORMATION
  Report Type: 
  Country: None (occurrence: None)
  Receive Date: 20071120
  Receipt Date: 20061108
  Transmission Date: 20080405
  Serious: No
  Sender: FDA-Public Use
  Company Number: US-BRISTOL-MYERS SQUIBB COMPANY-13571468

PATIENT
  Age: 61 Year
  Sex: Male
  Weight: 86 kg

DRUGS (2)
  1. AVALIDE [Suspect]
     Indication: HYPERTENSION
     Dosage: ORIGINAL DOSE WAS 150MG PO DAILY THEN IT WAS INCREASED TO THE 300MG
     Route: 048
     Dates: start: 20061001
  2. INSULIN [Concomitant]

REACTIONS (1)
  - HYPERTENSION [None]
